FAERS Safety Report 6323615-2 (Version None)
Quarter: 2009Q3

REPORT INFORMATION
  Report Type: 
  Country: None (occurrence: None)
  Receive Date: 20090824
  Receipt Date: 20090609
  Transmission Date: 20100115
  Serious: No
  Sender: FDA-Public Use
  Company Number: US-ABBOTT-09P-163-0578964-00

PATIENT
  Sex: Male

DRUGS (6)
  1. NIASPAN [Suspect]
     Indication: LOW DENSITY LIPOPROTEIN INCREASED
     Dates: start: 20040101, end: 20090522
  2. NIASPAN [Suspect]
     Indication: CARDIAC FUNCTION TEST
  3. SIMCOR [Suspect]
     Indication: LOW DENSITY LIPOPROTEIN INCREASED
     Dosage: 500/20 MG
     Dates: start: 20090522
  4. SIMCOR [Suspect]
     Indication: CARDIAC FUNCTION TEST
  5. ASPIRIN [Concomitant]
     Indication: DRUG USE FOR UNKNOWN INDICATION
     Route: 048
  6. COZAAR [Concomitant]
     Indication: DRUG USE FOR UNKNOWN INDICATION
     Route: 048

REACTIONS (5)
  - BACK PAIN [None]
  - FEELING HOT [None]
  - FLUSHING [None]
  - MIDDLE INSOMNIA [None]
  - PRURITUS [None]
